APPROVED DRUG PRODUCT: ZERIT
Active Ingredient: STAVUDINE
Strength: 1MG/ML **Federal Register determination that product was not discontinued or withdrawn for safety or effectiveness reasons**
Dosage Form/Route: FOR SOLUTION;ORAL
Application: N020413 | Product #001
Applicant: BRISTOL MYERS SQUIBB CO
Approved: Sep 6, 1996 | RLD: Yes | RS: No | Type: DISCN